FAERS Safety Report 12329118 (Version 1)
Quarter: 2016Q2

REPORT INFORMATION
  Report Type: Spontaneous
  Country: US (occurrence: US)
  Receive Date: 20160503
  Receipt Date: 20160503
  Transmission Date: 20160815
  Serious: No
  Sender: FDA-Public Use
  Company Number: US-PFIZER INC-2016197549

PATIENT
  Age: 71 Year
  Sex: Female

DRUGS (11)
  1. NIASPAN [Suspect]
     Active Substance: NIACIN
     Dosage: UNK
  2. SIMVASTATIN. [Suspect]
     Active Substance: SIMVASTATIN
     Dosage: UNK
  3. QUALAQUIN [Suspect]
     Active Substance: QUININE SULFATE
     Dosage: UNK
  4. TRICOR [Suspect]
     Active Substance: FENOFIBRATE
     Dosage: UNK
  5. LIPITOR [Suspect]
     Active Substance: ATORVASTATIN CALCIUM
     Dosage: UNK
  6. DURAGESIC [Suspect]
     Active Substance: FENTANYL
     Dosage: UNK
  7. MEDROL [Suspect]
     Active Substance: METHYLPREDNISOLONE
     Dosage: 4 MG, UNK
  8. CORGARD [Suspect]
     Active Substance: NADOLOL
     Dosage: UNK
  9. LISINOPRIL. [Suspect]
     Active Substance: LISINOPRIL
     Dosage: UNK
  10. DIABETA [Suspect]
     Active Substance: GLYBURIDE
     Dosage: UNK
  11. GLUCOPHAGE [Suspect]
     Active Substance: METFORMIN HYDROCHLORIDE
     Dosage: UNK

REACTIONS (1)
  - Drug hypersensitivity [Unknown]
